FAERS Safety Report 17529358 (Version 1)
Quarter: 2020Q1

REPORT INFORMATION
  Report Type: Spontaneous
  Country: IT (occurrence: IT)
  Receive Date: 20200311
  Receipt Date: 20200311
  Transmission Date: 20200409
  Serious: Yes (Disabling)
  Sender: FDA-Public Use
  Company Number: IT-MYLANLABS-2020M1026126

PATIENT
  Age: 17 Year
  Sex: Male
  Weight: 65 kg

DRUGS (1)
  1. ISOTRETINOIN. [Suspect]
     Active Substance: ISOTRETINOIN
     Indication: ACNE FULMINANS
     Dosage: 20 MG, QD
     Route: 048
     Dates: start: 20190901, end: 20200201

REACTIONS (2)
  - Erectile dysfunction [Not Recovered/Not Resolved]
  - Loss of libido [Not Recovered/Not Resolved]

NARRATIVE: CASE EVENT DATE: 20191115
